FAERS Safety Report 25761284 (Version 1)
Quarter: 2025Q3

REPORT INFORMATION
  Report Type: Spontaneous
  Country: US (occurrence: US)
  Receive Date: 20250904
  Receipt Date: 20250904
  Transmission Date: 20251021
  Serious: Yes (Hospitalization, Other)
  Sender: BRISTOL-MYERS SQUIBB COMPANY
  Company Number: US-BRISTOL-MYERS SQUIBB COMPANY-2025-121901

PATIENT
  Age: 43 Year
  Sex: Female

DRUGS (1)
  1. IDHIFA [Suspect]
     Active Substance: ENASIDENIB MESYLATE
     Indication: Acute leukaemia
     Route: 048
     Dates: start: 2025

REACTIONS (5)
  - Taste disorder [Unknown]
  - Pneumonia [Unknown]
  - Nausea [Unknown]
  - Illness [Unknown]
  - Product use issue [Unknown]
